FAERS Safety Report 5845566-X (Version None)
Quarter: 2008Q3

REPORT INFORMATION
  Report Type: 
  Country: None (occurrence: None)
  Receive Date: 20080814
  Receipt Date: 20080811
  Transmission Date: 20090109
  Serious: Yes (Life-Threatening, Hospitalization)
  Sender: FDA-Public Use
  Company Number: FR-ASTRAZENECA-2008CG00784

PATIENT
  Age: 10616 Day
  Sex: Female

DRUGS (4)
  1. DIPRIVAN [Suspect]
     Indication: INDUCTION OF ANAESTHESIA
     Route: 042
     Dates: start: 20080328, end: 20080328
  2. SUFENTANIL MERCK [Suspect]
     Indication: INDUCTION OF ANAESTHESIA
     Route: 042
     Dates: start: 20080328, end: 20080328
  3. CELOCURIN [Suspect]
     Indication: INDUCTION OF ANAESTHESIA
     Route: 042
     Dates: start: 20080328, end: 20080328
  4. ATARAX [Suspect]
     Indication: PREMEDICATION
     Route: 048
     Dates: start: 20080328, end: 20080328

REACTIONS (3)
  - ANAPHYLACTIC SHOCK [None]
  - BRONCHOSPASM [None]
  - CIRCULATORY COLLAPSE [None]
